FAERS Safety Report 8328874-2 (Version None)
Quarter: 2012Q2

REPORT INFORMATION
  Report Type: 
  Country: None (occurrence: None)
  Receive Date: 20120502
  Receipt Date: 20120425
  Transmission Date: 20120825
  Serious: Yes (Hospitalization, Other)
  Sender: FDA-Public Use
  Company Number: PHHY2012FR025786

PATIENT
  Sex: Female

DRUGS (14)
  1. MYCOPHENOLATE MOFETIL (CELLCEPT) [Concomitant]
     Indication: RENAL TRANSPLANT
     Dosage: 750 MG, BID
  2. NEORAL [Concomitant]
     Indication: RENAL TRANSPLANT
     Dates: end: 20111115
  3. CINACALCET HYDROCHLORIDE [Concomitant]
     Dosage: 60 MG, UNK
  4. MIRCERA [Concomitant]
     Dosage: 100 UG, PER MONTH
     Dates: start: 20120106
  5. CERTICAN [Suspect]
     Indication: RENAL TRANSPLANT
     Dosage: 1.5 MG, BID
     Dates: start: 20111107, end: 20120228
  6. NEORAL [Concomitant]
  7. EZETIMIBE [Concomitant]
     Dosage: 10 MG/20 MG
     Dates: start: 20111205
  8. ESOMEPRAZOLE MAGNESIUM [Concomitant]
     Dates: start: 20120106
  9. ATORVASTATIN [Concomitant]
     Dosage: 40 MG, UNK
     Dates: end: 20111205
  10. MIRCERA [Concomitant]
     Dosage: 75 UG, PER MONTH
  11. ATORVASTATIN [Concomitant]
     Dosage: 20 MG, UNK
  12. VITAMIN D [Concomitant]
  13. APROVEL [Concomitant]
     Dosage: 150 MG, UNK
  14. VITAMIN D [Concomitant]

REACTIONS (16)
  - DYSPNOEA [None]
  - COUGH [None]
  - PYREXIA [None]
  - OEDEMA [None]
  - PLEURAL EFFUSION [None]
  - OROPHARYNGEAL PAIN [None]
  - RENAL FAILURE CHRONIC [None]
  - SINUSITIS [None]
  - RHINORRHOEA [None]
  - CARDIAC FAILURE [None]
  - LUNG DISORDER [None]
  - ANAEMIA [None]
  - INTERSTITIAL LUNG DISEASE [None]
  - ALVEOLITIS [None]
  - WEIGHT DECREASED [None]
  - BRONCHITIS [None]
